FAERS Safety Report 4650744-1 (Version None)
Quarter: 2005Q2

REPORT INFORMATION
  Report Type: 
  Country: None (occurrence: None)
  Receive Date: 20050503
  Receipt Date: 20050307
  Transmission Date: 20051028
  Serious: Yes (Death)
  Sender: FDA-Public Use
  Company Number: GB-BOEHRINGER INGELHEIM PHARMACEUTICALS, INC.-2005-UK-00385UK

PATIENT
  Sex: Female

DRUGS (9)
  1. SPIRIVA [Suspect]
     Indication: CHRONIC OBSTRUCTIVE PULMONARY DISEASE
     Route: 055
  2. SPIRIVA [Suspect]
     Indication: ASTHMA
  3. SYMBICORT [Concomitant]
  4. TERBUTALINE [Concomitant]
     Route: 055
  5. BUDESONIDE [Concomitant]
  6. THIAMINE [Concomitant]
     Route: 048
  7. VITAMIN B COMPOUND STRONG [Concomitant]
  8. OXYGEN [Concomitant]
     Route: 055
  9. MORPHINE SULFATE [Concomitant]
     Route: 048

REACTIONS (2)
  - METASTATIC BRONCHIAL CARCINOMA [None]
  - METASTATIC NEOPLASM [None]
